FAERS Safety Report 10504510 (Version 1)
Quarter: 2014Q4

REPORT INFORMATION
  Report Type: Spontaneous
  Country: SE (occurrence: SE)
  Receive Date: 20141008
  Receipt Date: 20141008
  Transmission Date: 20150528
  Serious: Yes (Hospitalization)
  Sender: FDA-Public Use
  Company Number: SE-009507513-1410SWE001699

PATIENT
  Age: 68 Year
  Sex: Male

DRUGS (1)
  1. INVANZ [Suspect]
     Active Substance: ERTAPENEM SODIUM
     Dosage: INVANZ 1 G POWDER FOR CONCENTRATE FOR SOLUTION FOR INFUSION, SOLUTION,1 DF, QD
     Route: 042
     Dates: start: 20140908, end: 20140917

REACTIONS (2)
  - Hallucination, auditory [Recovered/Resolved]
  - Confusional state [Recovered/Resolved]

NARRATIVE: CASE EVENT DATE: 20140912
